FAERS Safety Report 25480826 (Version 1)
Quarter: 2025Q2

REPORT INFORMATION
  Report Type: Spontaneous
  Country: US (occurrence: US)
  Receive Date: 20250625
  Receipt Date: 20250625
  Transmission Date: 20250716
  Serious: No
  Sender: GALDERMA
  Company Number: US-GALDERMA-US2025008913

PATIENT

DRUGS (6)
  1. NEMLUVIO [Suspect]
     Active Substance: NEMOLIZUMAB-ILTO
     Indication: Dermatitis atopic
     Route: 058
     Dates: start: 20250409, end: 20250409
  2. NEMLUVIO [Suspect]
     Active Substance: NEMOLIZUMAB-ILTO
     Route: 058
     Dates: start: 20250507, end: 20250507
  3. CLOBETASOL PROPIONATE [Suspect]
     Active Substance: CLOBETASOL PROPIONATE
     Indication: Dermatitis atopic
     Route: 061
  4. TRIAMCINOLONE [Concomitant]
     Active Substance: TRIAMCINOLONE
     Indication: Dermatitis atopic
     Route: 061
  5. CALCIUM [Concomitant]
     Active Substance: CALCIUM
     Indication: Osteopenia
     Dates: start: 202501
  6. VITAMIN D [Concomitant]
     Active Substance: VITAMIN D NOS
     Indication: Osteopenia
     Dates: start: 202501

REACTIONS (7)
  - Skin weeping [Not Recovered/Not Resolved]
  - Exfoliative rash [Not Recovered/Not Resolved]
  - Rash papular [Not Recovered/Not Resolved]
  - Skin fissures [Not Recovered/Not Resolved]
  - Feeling hot [Not Recovered/Not Resolved]
  - Erythema [Not Recovered/Not Resolved]
  - Drug ineffective [Unknown]

NARRATIVE: CASE EVENT DATE: 20250101
